FAERS Safety Report 5440853-1 (Version None)
Quarter: 2007Q3

REPORT INFORMATION
  Report Type: 
  Country: None (occurrence: None)
  Receive Date: 20070731
  Receipt Date: 20070524
  Transmission Date: 20080115
  Serious: No
  Sender: FDA-Public Use
  Company Number: US200705006360

PATIENT
  Age: 43 Year
  Sex: Female
  Weight: 97.1 kg

DRUGS (5)
  1. BYETTA [Suspect]
     Indication: TYPE 2 DIABETES MELLITUS
     Dosage: 5 UG, 2/D,10UG,2/D
     Dates: start: 20060301, end: 20060401
  2. BYETTA [Suspect]
     Indication: TYPE 2 DIABETES MELLITUS
     Dosage: 5 UG, 2/D,10UG,2/D
     Dates: start: 20060401, end: 20070524
  3. BYETTA [Suspect]
     Indication: TYPE 2 DIABETES MELLITUS
     Dosage: 5 UG, 2/D,10UG,2/D
     Dates: start: 20070524
  4. EXENATIDE [Concomitant]
  5. METFORMIN HCL [Concomitant]

REACTIONS (3)
  - HYPOGLYCAEMIA [None]
  - WEIGHT DECREASED [None]
  - WEIGHT INCREASED [None]
